FAERS Safety Report 12092356 (Version 1)
Quarter: 2016Q1

REPORT INFORMATION
  Report Type: Spontaneous
  Country: US (occurrence: None)
  Receive Date: 20160217
  Receipt Date: 20160217
  Transmission Date: 20160526
  Serious: Yes (Hospitalization, Other)
  Sender: FDA-Public Use
  Company Number: None

PATIENT
  Age: 42 Year
  Sex: Male
  Weight: 88.45 kg

DRUGS (1)
  1. METHOTREXATE 25 MG/ML 2 ML VIALS MDV HOSPIRA [Suspect]
     Active Substance: METHOTREXATE
     Dosage: 25 MG/ML 0.3 ML WEEKY SQ
     Route: 058
     Dates: start: 20160122, end: 20160129

REACTIONS (6)
  - Nausea [None]
  - Loss of consciousness [None]
  - Diarrhoea [None]
  - Fall [None]
  - Head injury [None]
  - Tinnitus [None]

NARRATIVE: CASE EVENT DATE: 20160129
